FAERS Safety Report 24928333 (Version 1)
Quarter: 2025Q1

REPORT INFORMATION
  Report Type: Spontaneous
  Country: DE (occurrence: DE)
  Receive Date: 20250205
  Receipt Date: 20250205
  Transmission Date: 20250409
  Serious: Yes (Death)
  Sender: BLUEPRINT MEDICINES
  Company Number: DE-Blueprint Medicines Corporation-2025-AER-00183

PATIENT

DRUGS (1)
  1. AVAPRITINIB [Suspect]
     Active Substance: AVAPRITINIB
     Indication: Chronic myeloid leukaemia
     Route: 065

REACTIONS (1)
  - General physical health deterioration [Fatal]
